FAERS Safety Report 7677360-1 (Version None)
Quarter: 2011Q3

REPORT INFORMATION
  Report Type: 
  Country: None (occurrence: None)
  Receive Date: 20110811
  Receipt Date: 20110729
  Transmission Date: 20111222
  Serious: Yes (Death, Hospitalization)
  Sender: FDA-Public Use
  Company Number: US-ELI_LILLY_AND_COMPANY-US201107002598

PATIENT
  Sex: Male

DRUGS (5)
  1. MORPHINE [Concomitant]
  2. REMERON [Concomitant]
  3. ZYPREXA ZYDIS [Suspect]
     Indication: DEMENTIA
     Dosage: 15 MG, QD
     Dates: start: 20110501, end: 20110601
  4. ARICEPT [Concomitant]
  5. NAMENDA [Concomitant]

REACTIONS (5)
  - DEATH [None]
  - APHAGIA [None]
  - PNEUMONIA [None]
  - OFF LABEL USE [None]
  - ASTHENIA [None]
